FAERS Safety Report 13671492 (Version 1)
Quarter: 2017Q2

REPORT INFORMATION
  Report Type: Spontaneous
  Country: US (occurrence: US)
  Receive Date: 20170620
  Receipt Date: 20170620
  Transmission Date: 20170830
  Serious: No
  Sender: FDA-Public Use
  Company Number: US-ROCHE-1458960

PATIENT
  Age: 45 Year
  Sex: Female

DRUGS (2)
  1. XELODA [Suspect]
     Active Substance: CAPECITABINE
     Indication: OESOPHAGEAL CARCINOMA
     Route: 048
  2. RADIATION THERAPY [Concomitant]
     Active Substance: RADIATION THERAPY

REACTIONS (1)
  - Dysphagia [Not Recovered/Not Resolved]
